FAERS Safety Report 11648927 (Version 2)
Quarter: 2015Q4

REPORT INFORMATION
  Report Type: Spontaneous
  Country: US (occurrence: US)
  Receive Date: 20151021
  Receipt Date: 20151028
  Transmission Date: 20160304
  Serious: Yes (Other)
  Sender: FDA-Public Use
  Company Number: US-DRREDDYS-USA/USA/15/0053504

PATIENT
  Sex: Male

DRUGS (4)
  1. ALBUTEROL. [Concomitant]
     Active Substance: ALBUTEROL
     Indication: PRODUCT USED FOR UNKNOWN INDICATION
     Route: 065
  2. ZENATANE [Suspect]
     Active Substance: ISOTRETINOIN
     Route: 065
  3. ISOTRETINOIN [Suspect]
     Active Substance: ISOTRETINOIN
     Indication: ACNE
     Route: 065
     Dates: start: 20150402
  4. ZENATANE [Suspect]
     Active Substance: ISOTRETINOIN
     Indication: ACNE
     Route: 065
     Dates: start: 20150618

REACTIONS (1)
  - Depressive symptom [Not Recovered/Not Resolved]
